FAERS Safety Report 6834032-0 (Version None)
Quarter: 2010Q3

REPORT INFORMATION
  Report Type: 
  Country: None (occurrence: None)
  Receive Date: 20100712
  Receipt Date: 20070409
  Transmission Date: 20110219
  Serious: No
  Sender: FDA-Public Use
  Company Number: US-PFIZER INC-2007029174

PATIENT
  Sex: Female
  Weight: 58.06 kg

DRUGS (4)
  1. CHANTIX [Suspect]
     Indication: SMOKING CESSATION THERAPY
     Dates: start: 20070201, end: 20070407
  2. ASTELIN [Concomitant]
     Route: 045
  3. CELEBREX [Concomitant]
  4. ANTIINFECTIVES [Concomitant]

REACTIONS (8)
  - CHILLS [None]
  - DECREASED APPETITE [None]
  - FLATULENCE [None]
  - HEADACHE [None]
  - NAUSEA [None]
  - PAIN [None]
  - PHARYNGITIS STREPTOCOCCAL [None]
  - PYREXIA [None]
